FAERS Safety Report 9546589 (Version 2)
Quarter: 2013Q4

REPORT INFORMATION
  Report Type: Spontaneous
  Country: DE (occurrence: DE)
  Receive Date: 20130924
  Receipt Date: 20131002
  Transmission Date: 20140711
  Serious: Yes (Hospitalization)
  Sender: FDA-Public Use
  Company Number: DE-ROCHE-1278401

PATIENT
  Age: 67 Year
  Sex: Male
  Weight: 80 kg

DRUGS (6)
  1. PEGFILGRASTIM [Suspect]
     Indication: B-CELL LYMPHOMA
     Dosage: 1 TIME A DAY FOR 1 DAY
     Route: 058
     Dates: start: 20130623, end: 20130623
  2. RITUXIMAB [Suspect]
     Indication: B-CELL LYMPHOMA
     Route: 042
     Dates: start: 20130619, end: 20130619
  3. CYCLOPHOSPHAMIDE [Suspect]
     Indication: B-CELL LYMPHOMA
     Dosage: ONE TIME A DAY
     Route: 042
     Dates: start: 20130620, end: 20130620
  4. DOXORUBICIN [Suspect]
     Indication: B-CELL LYMPHOMA
     Dosage: 1 TIME A DAY
     Route: 042
     Dates: start: 20130620, end: 20130620
  5. VINCRISTINE [Suspect]
     Indication: B-CELL LYMPHOMA
     Dosage: 1 TIME A DAY
     Route: 042
     Dates: start: 20130620, end: 20130620
  6. PREDNISOLONE [Suspect]
     Indication: B-CELL LYMPHOMA
     Dosage: 1 TIME A DAY
     Route: 048
     Dates: start: 20130619, end: 20130627

REACTIONS (3)
  - Constipation [Unknown]
  - Hypokalaemia [Unknown]
  - Urinary tract infection [Unknown]
